FAERS Safety Report 21018604 (Version 4)
Quarter: 2023Q1

REPORT INFORMATION
  Report Type: Spontaneous
  Country: CH (occurrence: CH)
  Receive Date: 20220628
  Receipt Date: 20230220
  Transmission Date: 20230418
  Serious: No
  Sender: FDA-Public Use
  Company Number: CH-AMGEN-CHESP2022103122

PATIENT
  Age: 22 Year
  Sex: Female

DRUGS (1)
  1. TALIMOGENE LAHERPAREPVEC [Suspect]
     Active Substance: TALIMOGENE LAHERPAREPVEC
     Indication: Product used for unknown indication
     Dosage: 1 MILLILITER, 10E6
     Route: 058
     Dates: start: 202206

REACTIONS (4)
  - Pyrexia [Recovered/Resolved]
  - Herpes virus infection [Recovered/Resolved]
  - Disease recurrence [Recovered/Resolved]
  - COVID-19 [Unknown]

NARRATIVE: CASE EVENT DATE: 20220601
